FAERS Safety Report 13116368 (Version 1)
Quarter: 2017Q1

REPORT INFORMATION
  Report Type: Spontaneous
  Country: US (occurrence: US)
  Receive Date: 20170116
  Receipt Date: 20170116
  Transmission Date: 20170428
  Serious: Yes (Hospitalization)
  Sender: FDA-Public Use
  Company Number: US-BEH-2017076954

PATIENT
  Age: 59 Year
  Sex: Female
  Weight: 101.59 kg

DRUGS (21)
  1. REMERON [Concomitant]
     Active Substance: MIRTAZAPINE
  2. VITAMIN C [Concomitant]
     Active Substance: ASCORBIC ACID
  3. LEXAPRO [Concomitant]
     Active Substance: ESCITALOPRAM OXALATE
  4. ZEMAIRA [Suspect]
     Active Substance: .ALPHA.1-PROTEINASE INHIBITOR HUMAN
     Indication: ALPHA-1 ANTI-TRYPSIN DEFICIENCY
     Dosage: 60 UNK, QW
     Route: 042
     Dates: start: 20140723
  5. EPIPEN [Concomitant]
     Active Substance: EPINEPHRINE
  6. DULERA [Concomitant]
     Active Substance: FORMOTEROL FUMARATE DIHYDRATE\MOMETASONE FUROATE
  7. LAMICTAL [Concomitant]
     Active Substance: LAMOTRIGINE
  8. DILANTIN [Concomitant]
     Active Substance: PHENYTOIN
  9. LOMOTIL [Concomitant]
     Active Substance: ATROPINE SULFATE\DIPHENOXYLATE HYDROCHLORIDE
  10. METOPROLOL. [Concomitant]
     Active Substance: METOPROLOL
  11. GABAPENTIN. [Concomitant]
     Active Substance: GABAPENTIN
  12. DIPHENHYDRAMINE. [Concomitant]
     Active Substance: DIPHENHYDRAMINE
  13. LIPITOR [Concomitant]
     Active Substance: ATORVASTATIN CALCIUM
  14. SPIRIVA [Concomitant]
     Active Substance: TIOTROPIUM BROMIDE MONOHYDRATE
  15. ACTOS M [Concomitant]
     Active Substance: METFORMIN HYDROCHLORIDE\PIOGLITAZONE HYDROCHLORIDE
  16. SODIUM CHLORIDE. [Concomitant]
     Active Substance: SODIUM CHLORIDE
  17. DIOVAN [Concomitant]
     Active Substance: VALSARTAN
  18. VICTOZA [Concomitant]
     Active Substance: LIRAGLUTIDE
  19. PROAIR HFA [Concomitant]
     Active Substance: ALBUTEROL SULFATE
  20. RISPERDAL [Concomitant]
     Active Substance: RISPERIDONE
  21. DEXILANT [Concomitant]
     Active Substance: DEXLANSOPRAZOLE

REACTIONS (4)
  - Blood magnesium decreased [Unknown]
  - Blood electrolytes abnormal [Unknown]
  - Fall [Unknown]
  - Hypoaesthesia [Unknown]

NARRATIVE: CASE EVENT DATE: 20170103
